FAERS Safety Report 7361030 (Version 4)
Quarter: 2013Q4

REPORT INFORMATION
  Report Type: Spontaneous
  Country: US (occurrence: US)
  Receive Date: 20100421
  Receipt Date: 20131219
  Transmission Date: 20140711
  Serious: Yes (Hospitalization, Other)
  Sender: FDA-Public Use
  Company Number: US-BAYER-201019638NA

PATIENT
  Age: 42 Year
  Sex: Female
  Weight: 63 kg

DRUGS (14)
  1. YASMIN [Suspect]
     Indication: PREMENSTRUAL DYSPHORIC DISORDER
     Route: 048
     Dates: start: 2003, end: 2006
  2. YASMIN [Suspect]
     Indication: PREMENSTRUAL SYNDROME
  3. YASMIN [Suspect]
     Indication: ORAL CONTRACEPTION
  4. PROZAC [Concomitant]
     Indication: PANIC DISORDER
     Dosage: UNK
     Dates: start: 1994
  5. PROZAC [Concomitant]
     Indication: DEPRESSION
  6. SINGULAIR [Concomitant]
     Indication: RHINITIS
     Dosage: UNK
     Dates: start: 2003
  7. SINGULAIR [Concomitant]
     Indication: ASTHMA
  8. STRATTERA [Concomitant]
  9. B12 [Concomitant]
  10. RITALIN [Concomitant]
     Dosage: UNK
     Dates: start: 2004, end: 2007
  11. ZYMAR [Concomitant]
     Dosage: 0.3 %, UNK
  12. AMOXICILLIN [Concomitant]
     Dosage: 875 MG, UNK
  13. MUPIROCIN [Concomitant]
     Dosage: 2 %, UNK
  14. ALBUTEROL [Concomitant]
     Dosage: 90 MCG

REACTIONS (15)
  - Cholelithiasis [None]
  - Cholecystitis chronic [None]
  - Attention deficit/hyperactivity disorder [None]
  - Nausea [None]
  - Abdominal distension [None]
  - Vomiting [None]
  - Abdominal pain [None]
  - Hyperhidrosis [None]
  - Cold sweat [None]
  - Balance disorder [None]
  - Dizziness [None]
  - Diarrhoea [None]
  - Constipation [None]
  - Biliary colic [None]
  - Anxiety [None]
